FAERS Safety Report 19147359 (Version 4)
Quarter: 2022Q2

REPORT INFORMATION
  Report Type: Report from Study
  Country: US (occurrence: US)
  Receive Date: 20210416
  Receipt Date: 20220606
  Transmission Date: 20220721
  Serious: Yes (Other)
  Sender: FDA-Public Use
  Company Number: US-TAKEDA-2021TUS023956

PATIENT
  Age: 5 Year
  Sex: Male

DRUGS (6)
  1. ADVATE [Suspect]
     Active Substance: ANTIHEMOPHILIC FACTOR, HUMAN RECOMBINANT
     Indication: Product used for unknown indication
     Dosage: 450 INTERNATIONAL UNIT
     Route: 042
  2. ADVATE [Suspect]
     Active Substance: ANTIHEMOPHILIC FACTOR, HUMAN RECOMBINANT
     Indication: Product used for unknown indication
     Dosage: 450 INTERNATIONAL UNIT
     Route: 042
  3. ADVATE [Suspect]
     Active Substance: ANTIHEMOPHILIC FACTOR, HUMAN RECOMBINANT
     Indication: Product used for unknown indication
     Dosage: 450 INTERNATIONAL UNIT
     Route: 042
  4. ADVATE [Suspect]
     Active Substance: ANTIHEMOPHILIC FACTOR, HUMAN RECOMBINANT
     Dosage: 500 INTERNATIONAL UNIT
     Route: 042
  5. ADVATE [Suspect]
     Active Substance: ANTIHEMOPHILIC FACTOR, HUMAN RECOMBINANT
     Dosage: 500 INTERNATIONAL UNIT
     Route: 042
  6. ADVATE [Suspect]
     Active Substance: ANTIHEMOPHILIC FACTOR, HUMAN RECOMBINANT
     Dosage: 500 INTERNATIONAL UNIT
     Route: 042

REACTIONS (6)
  - Haemorrhage [Recovered/Resolved]
  - Gingival bleeding [Recovered/Resolved]
  - Epistaxis [Recovered/Resolved]
  - Haematuria [Recovered/Resolved]
  - Tooth loss [Recovered/Resolved]
  - Limb injury [Recovered/Resolved]

NARRATIVE: CASE EVENT DATE: 20210412
